FAERS Safety Report 20925435 (Version 1)
Quarter: 2022Q2

REPORT INFORMATION
  Report Type: Spontaneous
  Country: GR (occurrence: GR)
  Receive Date: 20220607
  Receipt Date: 20220607
  Transmission Date: 20220720
  Serious: Yes (Other)
  Sender: FDA-Public Use
  Company Number: GR-ABBVIE-22K-066-4407472-00

PATIENT
  Age: 74 Year
  Sex: Female

DRUGS (10)
  1. AZACITIDINE [Suspect]
     Active Substance: AZACITIDINE
     Indication: Acute myeloid leukaemia
     Dosage: UNK
     Dates: start: 202105, end: 202108
  2. AZACITIDINE [Suspect]
     Active Substance: AZACITIDINE
     Indication: Myelodysplastic syndrome
     Dosage: UNK
     Dates: start: 202108, end: 202110
  3. AZACITIDINE [Suspect]
     Active Substance: AZACITIDINE
     Dosage: UNK, START DATE: UNKNOWN DATE IN OCT-2021
     Dates: end: 202111
  4. AZACITIDINE [Suspect]
     Active Substance: AZACITIDINE
     Dosage: UNK, START DATE: UNKNOWN DATE IN-NOV-2021
     Dates: end: 202202
  5. AZACITIDINE [Suspect]
     Active Substance: AZACITIDINE
     Dosage: UNK, START DATE: UNKNOWN DATE IN-FEB-2022
  6. VENETOCLAX [Suspect]
     Active Substance: VENETOCLAX
     Indication: Acute myeloid leukaemia
     Dosage: UNK
     Route: 048
     Dates: start: 202105, end: 202108
  7. VENETOCLAX [Suspect]
     Active Substance: VENETOCLAX
     Indication: Myelodysplastic syndrome
     Dosage: UNK
     Route: 048
     Dates: start: 202108, end: 202110
  8. VENETOCLAX [Suspect]
     Active Substance: VENETOCLAX
     Dosage: UNK, START DATE: UNKNOWN DATE IN OCT-2021
     Route: 048
     Dates: end: 202111
  9. VENETOCLAX [Suspect]
     Active Substance: VENETOCLAX
     Dosage: UNK, START DATE: UNKNOWN DATE IN-NOV-2021
     Route: 048
     Dates: end: 202202
  10. VENETOCLAX [Suspect]
     Active Substance: VENETOCLAX
     Dosage: UNK, START DATE: UNKNOWN DATE IN-FEB-2022
     Route: 048

REACTIONS (4)
  - Myelodysplastic syndrome [Unknown]
  - Toxicity to various agents [Unknown]
  - Neutropenia [Unknown]
  - Thrombocytopenia [Unknown]

NARRATIVE: CASE EVENT DATE: 20210801
